FAERS Safety Report 4891178-4 (Version None)
Quarter: 2006Q1

REPORT INFORMATION
  Report Type: 
  Country: None (occurrence: None)
  Receive Date: 20060125
  Receipt Date: 20060119
  Transmission Date: 20060701
  Serious: Yes (Hospitalization)
  Sender: FDA-Public Use
  Company Number: US-GLAXOSMITHKLINE-A0590136A

PATIENT
  Age: 88 Year
  Sex: Female

DRUGS (12)
  1. FONDAPARINUX SODIUM [Suspect]
     Indication: ACUTE MYOCARDIAL INFARCTION
     Dosage: 2.5MG PER DAY
     Route: 058
     Dates: start: 20041004, end: 20041005
  2. ASPIRIN [Concomitant]
  3. PLAVIX [Concomitant]
  4. FLEXERIL [Concomitant]
  5. PROCARDIA [Concomitant]
  6. INDERAL [Concomitant]
  7. CRESTOR [Concomitant]
  8. TAMOXIFEN CITRATE [Concomitant]
  9. VERSED [Concomitant]
  10. ADALAT [Concomitant]
  11. BENICAR [Concomitant]
  12. LEVAQUIN [Concomitant]

REACTIONS (3)
  - MENTAL STATUS CHANGES [None]
  - RENAL FAILURE ACUTE [None]
  - VASCULAR PSEUDOANEURYSM [None]
